FAERS Safety Report 8367982-7 (Version None)
Quarter: 2012Q2

REPORT INFORMATION
  Report Type: 
  Country: None (occurrence: None)
  Receive Date: 20120516
  Receipt Date: 20120501
  Transmission Date: 20120825
  Serious: Yes (Hospitalization)
  Sender: FDA-Public Use
  Company Number: 2011SGN00208

PATIENT
  Age: 33 Year
  Sex: Female
  Weight: 48.1 kg

DRUGS (14)
  1. DACARBAZINE [Suspect]
     Indication: HODGKIN'S DISEASE
     Dosage: 375 MG/M2, Q14D, INTRAVENOUS
     Route: 042
     Dates: start: 20110408, end: 20110909
  2. LACTULOSE [Concomitant]
  3. ATIVAN [Concomitant]
  4. BRENTUXIMAB VEDOTIN (BRENTUXIMAB VEDOTIN) INJECTION [Suspect]
     Indication: HODGKIN'S DISEASE
     Dosage: 1.2 MG/KG, Q 14D, INTRAVENOUS
     Route: 042
     Dates: start: 20110408, end: 20110909
  5. DOXORUBICIN HCL [Suspect]
     Indication: HODGKIN'S DISEASE
     Dosage: 25 MG/M2, Q14D, INTRAVENOUS
     Route: 042
     Dates: start: 20110408, end: 20110909
  6. BLEOMYCIN SULFATE [Suspect]
     Indication: HODGKIN'S DISEASE
     Dosage: 10 UNITS/M2, Q14D, INTRAVENOUS
     Route: 042
     Dates: start: 20110408, end: 20110826
  7. GRANISETRON (GRANISETRON HYDROCHLORIDE) [Concomitant]
  8. ZOFRAN [Concomitant]
  9. ANUSOL (BISMUTH HYDROXIDE, BISMUTH SUBGALLATE, BORIC ACID, MYROXYLON B [Concomitant]
  10. TRAMADOL HCL [Concomitant]
  11. PHENERGAN [Concomitant]
  12. PROTEIN SUPPLEMENTS [Concomitant]
  13. MAGNESIUM PLUS (MAGNESIUM) [Concomitant]
  14. VINBLASTINE SULFATE [Suspect]
     Indication: HODGKIN'S DISEASE
     Dosage: 6 MG/M2, Q 14D, INTRAVENOUS
     Route: 042
     Dates: start: 20110408, end: 20110909

REACTIONS (18)
  - HEADACHE [None]
  - LUNG INFILTRATION [None]
  - AREFLEXIA [None]
  - CEREBRAL HAEMORRHAGE [None]
  - TOXICITY TO VARIOUS AGENTS [None]
  - ACUTE RESPIRATORY FAILURE [None]
  - PNEUMOCYSTIS JIROVECI PNEUMONIA [None]
  - PULMONARY TOXICITY [None]
  - PNEUMOMEDIASTINUM [None]
  - POSTERIOR REVERSIBLE ENCEPHALOPATHY SYNDROME [None]
  - PNEUMOTHORAX [None]
  - CANDIDIASIS [None]
  - SUBCUTANEOUS EMPHYSEMA [None]
  - HYPERTENSION [None]
  - TACHYPNOEA [None]
  - BRAIN DEATH [None]
  - PLEURAL EFFUSION [None]
  - LUNG INFECTION [None]
